FAERS Safety Report 19265314 (Version 2)
Quarter: 2021Q4

REPORT INFORMATION
  Report Type: Spontaneous
  Country: GB (occurrence: GB)
  Receive Date: 20210517
  Receipt Date: 20211005
  Transmission Date: 20220303
  Serious: No
  Sender: FDA-Public Use
  Company Number: GB-GW PHARMA-202105GBGW02352

PATIENT

DRUGS (4)
  1. CANNABIDIOL [Suspect]
     Active Substance: CANNABIDIOL
     Indication: Lennox-Gastaut syndrome
     Dosage: 2.4 MG/KG, 100 MILLIGRAM QD BASED ON WEIGHT 41 KGS
     Route: 048
     Dates: start: 20200521, end: 202005
  2. CANNABIDIOL [Suspect]
     Active Substance: CANNABIDIOL
     Dosage: 3.92 MG/KG, 100 MILLIGRAM BID BASED ON WEIGHT 51 KGS
     Route: 048
     Dates: start: 202005, end: 20200714
  3. CANNABIDIOL [Suspect]
     Active Substance: CANNABIDIOL
     Dosage: 4.81 MG/KG, 140 MG BID BASED ON WEIGHT 58.1 KG
     Route: 048
     Dates: start: 20200714, end: 20210801
  4. CANNABIDIOL [Suspect]
     Active Substance: CANNABIDIOL
     Dosage: 6.2 MG/KG, 190 MILLIGRAM BID, BASED ON WEIGHT 82.6 KGS
     Route: 048
     Dates: start: 20210802

REACTIONS (2)
  - Weight increased [Unknown]
  - Decreased appetite [Unknown]

NARRATIVE: CASE EVENT DATE: 20200501
